FAERS Safety Report 4494265-8 (Version None)
Quarter: 2004Q4

REPORT INFORMATION
  Report Type: 
  Country: None (occurrence: None)
  Receive Date: 20041029
  Receipt Date: 20041018
  Transmission Date: 20050328
  Serious: Yes (Other)
  Sender: FDA-Public Use
  Company Number: 200410258BBE

PATIENT
  Sex: Male

DRUGS (1)
  1. FACTOR IX COMPLEX [Suspect]
     Indication: FACTOR VIII DEFICIENCY
     Dates: end: 19820101

REACTIONS (2)
  - HEPATITIS B VIRUS [None]
  - HEPATITIS C VIRUS [None]
